FAERS Safety Report 23598186 (Version 1)
Quarter: 2024Q1

REPORT INFORMATION
  Report Type: Spontaneous
  Country: DE (occurrence: DE)
  Receive Date: 20240305
  Receipt Date: 20240305
  Transmission Date: 20240410
  Serious: Yes (Death)
  Sender: FDA-Public Use
  Company Number: DE-CELLTRION INC.-2024DE005051

PATIENT

DRUGS (3)
  1. BEVACIZUMAB [Suspect]
     Active Substance: BEVACIZUMAB
     Indication: Neoplasm malignant
     Dosage: 11 OCT 2023, RECEIVED MOST RECENT DOSE 7.5 MG/KG, LAST DOSE ADMINISTERED PRIOR TO AE/SAE ONSET
     Route: 042
     Dates: start: 20230718
  2. CAPECITABINE [Suspect]
     Active Substance: CAPECITABINE
     Indication: Neoplasm malignant
     Dosage: ON 24/OCT/2023, RECEIVED MOST RECENT DOSE 800 MG/M2, LAST DOSE ADMINISTERED PRIOR TO AE/SAE ONSET.
     Route: 048
     Dates: start: 20230718
  3. IRINOTECAN HYDROCHLORIDE [Suspect]
     Active Substance: IRINOTECAN HYDROCHLORIDE
     Indication: Neoplasm malignant
     Dosage: ON 11/OCT/2023, RECEIVED MOST RECENT DOSE 200 MG/M2, LAST DOSE ADMINISTERED PRIOR TO AE/SAE ONSET
     Route: 042
     Dates: start: 20230718

REACTIONS (2)
  - Dyspnoea [Fatal]
  - Neoplasm malignant [Fatal]

NARRATIVE: CASE EVENT DATE: 20231028
